FAERS Safety Report 7587141-5 (Version None)
Quarter: 2011Q3

REPORT INFORMATION
  Report Type: 
  Country: None (occurrence: None)
  Receive Date: 20110701
  Receipt Date: 20110622
  Transmission Date: 20111222
  Serious: Yes (Hospitalization)
  Sender: FDA-Public Use
  Company Number: JP-GENZYME-THYM-1002553

PATIENT

DRUGS (8)
  1. DEFERASIROX [Concomitant]
     Indication: IRON OVERLOAD
     Dosage: UNK
     Dates: start: 20100329, end: 20100411
  2. RISPERIDONE [Concomitant]
     Indication: DELIRIUM
     Dosage: UNK
     Dates: start: 20100529, end: 20100604
  3. QUETIAPINE FUMARATE [Concomitant]
     Indication: DELIRIUM
  4. THYMOGLOBULIN [Suspect]
     Indication: APLASTIC ANAEMIA
     Dosage: 200 MG, QD
     Route: 042
     Dates: start: 20100329, end: 20100402
  5. DEFERASIROX [Concomitant]
     Dosage: UNK
     Dates: start: 20100831
  6. RED BLOOD CELLS [Concomitant]
     Indication: APLASTIC ANAEMIA
     Route: 042
  7. CYCLOSPORINE [Concomitant]
     Indication: APLASTIC ANAEMIA
     Dosage: UNK
     Dates: start: 20090329, end: 20100602
  8. BENFOTIAMINE [Concomitant]
     Indication: VITAMIN SUPPLEMENTATION
     Dosage: UNK
     Dates: start: 20100615

REACTIONS (3)
  - INTERSTITIAL LUNG DISEASE [None]
  - PYREXIA [None]
  - NEUTROPENIA [None]
